FAERS Safety Report 5946491-6 (Version None)
Quarter: 2008Q4

REPORT INFORMATION
  Report Type: 
  Country: None (occurrence: None)
  Receive Date: 20081110
  Receipt Date: 20081110
  Transmission Date: 20090506
  Serious: Yes (Death)
  Sender: FDA-Public Use
  Company Number: A0755499A

PATIENT
  Age: 96 Year
  Sex: Female
  Weight: 65 kg

DRUGS (4)
  1. AVANDIA [Suspect]
     Dosage: 4MG TWICE PER DAY
     Route: 048
     Dates: start: 20050501, end: 20080818
  2. MICARDIS [Concomitant]
     Dates: start: 20080301, end: 20080901
  3. SUSTRATE [Concomitant]
     Dates: start: 19990101, end: 20080901
  4. LASIX [Concomitant]
     Route: 042
     Dates: start: 20080601, end: 20080901

REACTIONS (2)
  - CARDIAC FAILURE [None]
  - DIABETES MELLITUS [None]
